FAERS Safety Report 8046619-0 (Version None)
Quarter: 2012Q1

REPORT INFORMATION
  Report Type: 
  Country: None (occurrence: None)
  Receive Date: 20120114
  Receipt Date: 20120109
  Transmission Date: 20120608
  Serious: No
  Sender: FDA-Public Use
  Company Number: US-BAYER-2012-003336

PATIENT
  Age: 51 Year
  Sex: Female

DRUGS (2)
  1. MIRENA [Concomitant]
  2. ALEVE (CAPLET) [Suspect]
     Indication: DYSMENORRHOEA
     Dosage: BOTTLE COUNT: UNSPECIFIED
     Route: 048

REACTIONS (1)
  - BLOOD PRESSURE INCREASED [None]
